FAERS Safety Report 8224870-4 (Version None)
Quarter: 2012Q1

REPORT INFORMATION
  Report Type: 
  Country: None (occurrence: None)
  Receive Date: 20120321
  Receipt Date: 20120308
  Transmission Date: 20120608
  Serious: Yes (Hospitalization)
  Sender: FDA-Public Use
  Company Number: US-ROCHE-1047994

PATIENT
  Age: 54 Year
  Sex: Female
  Weight: 57.36 kg

DRUGS (10)
  1. AVASTIN [Suspect]
     Indication: OVARIAN EPITHELIAL CANCER
     Dosage: BEGINNING WITH CYCLE 2.(CYCLES 1-6 AND 7-22), LAST DOSE ADMINISTERED ON 27 DEC 2011,CYCLE 7, DAY 1 B
     Route: 042
  2. AVASTIN [Suspect]
     Dosage: DOSE NOT CHANGED.
     Route: 042
  3. CLONAZEPAM [Concomitant]
  4. NAPROXEN [Concomitant]
  5. CARAFATE [Concomitant]
  6. FIORINAL [Concomitant]
  7. PACLITAXEL [Suspect]
     Indication: OVARIAN EPITHELIAL CANCER
     Dosage: OVER 3 HRS ON DAY 1, (CYCLES 1-6)
     Route: 042
     Dates: start: 20111003
  8. CISPLATIN [Suspect]
     Indication: OVARIAN EPITHELIAL CANCER
     Dosage: ON DAY 8 (CYCLE 1-6)
     Route: 033
     Dates: start: 20111003
  9. PACLITAXEL [Suspect]
     Dosage: ON DAY 08, (CYCLES 1-6)
     Route: 033
  10. ATENOLOL [Concomitant]

REACTIONS (3)
  - COGNITIVE DISORDER [None]
  - HEADACHE [None]
  - DIARRHOEA [None]
